FAERS Safety Report 9781440 (Version 2)
Quarter: 2014Q1

REPORT INFORMATION
  Report Type: Spontaneous
  Country: GB (occurrence: GB)
  Receive Date: 20131224
  Receipt Date: 20140204
  Transmission Date: 20141002
  Serious: No
  Sender: FDA-Public Use
  Company Number: GB-JNJFOC-20131208698

PATIENT
  Sex: Male

DRUGS (1)
  1. DUROGESIC DTRANS [Suspect]
     Indication: COMPLEX REGIONAL PAIN SYNDROME
     Dosage: TWO 100 UG/HR AND 50 UG/HR
     Route: 062

REACTIONS (4)
  - Prescribed overdose [Unknown]
  - Hyperhidrosis [Unknown]
  - Product quality issue [Unknown]
  - Inappropriate schedule of drug administration [Unknown]
